FAERS Safety Report 26108172 (Version 1)
Quarter: 2025Q4

REPORT INFORMATION
  Report Type: Spontaneous
  Country: US (occurrence: US)
  Receive Date: 20251201
  Receipt Date: 20251201
  Transmission Date: 20260117
  Serious: Yes (Hospitalization)
  Sender: IPSEN BIOPHARMACEUTICALS, INC.
  Company Number: US-IPSEN Group, Research and Development-2025-05558

PATIENT
  Age: 30 Year
  Sex: Female
  Weight: 90 kg

DRUGS (14)
  1. TAZVERIK [Suspect]
     Active Substance: TAZEMETOSTAT HYDROBROMIDE
     Indication: Soft tissue sarcoma
     Dosage: 800 MG TWICE DAILY
     Route: 048
     Dates: start: 20240830
  2. PROZAC [Concomitant]
     Active Substance: FLUOXETINE HYDROCHLORIDE
  3. ATIVAN [Concomitant]
     Active Substance: LORAZEPAM
  4. GABAPENTIN [Concomitant]
     Active Substance: GABAPENTIN
  5. IBUPROFEN [Concomitant]
     Active Substance: IBUPROFEN
  6. TYLENOL [Concomitant]
     Active Substance: ACETAMINOPHEN
  7. BENADRYL [Concomitant]
     Active Substance: DIPHENHYDRAMINE HYDROCHLORIDE
  8. OXYCODONE [Concomitant]
     Active Substance: OXYCODONE
  9. DOXORUBICIN [Concomitant]
     Active Substance: DOXORUBICIN
  10. HYDROMORPHONE [Concomitant]
     Active Substance: HYDROMORPHONE
  11. MORPHINE SULFATE [Concomitant]
     Active Substance: MORPHINE SULFATE
  12. TRAMADOL [Concomitant]
     Active Substance: TRAMADOL
  13. MELOXICAM [Concomitant]
     Active Substance: MELOXICAM
  14. ALBUTEROL SULFATE [Concomitant]
     Active Substance: ALBUTEROL SULFATE

REACTIONS (4)
  - Hospitalisation [Unknown]
  - Anaemia [Recovering/Resolving]
  - Product dose omission issue [Unknown]
  - Product supply issue [Unknown]
